FAERS Safety Report 18092068 (Version 3)
Quarter: 2021Q2

REPORT INFORMATION
  Report Type: Spontaneous
  Country: US (occurrence: US)
  Receive Date: 20200730
  Receipt Date: 20210629
  Transmission Date: 20210717
  Serious: Yes (Life-Threatening, Hospitalization)
  Sender: FDA-Public Use
  Company Number: US-TEVA-2020-US-1806027

PATIENT
  Age: 26 Year
  Sex: Male

DRUGS (5)
  1. TRIIODOTHYRONINE [Suspect]
     Active Substance: LIOTHYRONINE SODIUM
     Indication: SUPPLEMENTATION THERAPY
     Dosage: 25 MICROGRAM DAILY;
     Route: 048
  2. STANOZOLOL [Suspect]
     Active Substance: STANOZOLOL
     Indication: SUPPLEMENTATION THERAPY
     Route: 065
  3. WHEY PROTEIN [Suspect]
     Active Substance: WHEY
     Indication: SUPPLEMENTATION THERAPY
     Dosage: 500 GRAM DAILY; WHEY PROTEINS 500 G/DAY MIXED IN MILK FOR THE PREVIOUS 2 MONTHS WHICH WAS IN EXCESS
     Route: 065
  4. L?GLUTAMINE POWDER [Suspect]
     Active Substance: GLUTAMINE
     Indication: SUPPLEMENTATION THERAPY
     Dosage: L?GLUTAMINE POWDER ONE SPOON EACH EVERYDAY
     Route: 065
  5. TESTOSTERONE. [Suspect]
     Active Substance: TESTOSTERONE
     Indication: SUPPLEMENTATION THERAPY
     Route: 065

REACTIONS (7)
  - Coronary artery thrombosis [Recovering/Resolving]
  - Myocardial infarction [Recovering/Resolving]
  - Thrombocytosis [Unknown]
  - Drug abuse [Unknown]
  - Acute myocardial infarction [Recovering/Resolving]
  - Coronary artery occlusion [Recovering/Resolving]
  - Overdose [Unknown]
